FAERS Safety Report 9632773 (Version 4)
Quarter: 2013Q4

REPORT INFORMATION
  Report Type: Spontaneous
  Country: DE (occurrence: DE)
  Receive Date: 20131018
  Receipt Date: 20131127
  Transmission Date: 20140711
  Serious: Yes (Hospitalization)
  Sender: FDA-Public Use
  Company Number: DE-OTSUKA-EU-2013-10169

PATIENT
  Age: 64 Year
  Sex: Male
  Weight: 88.8 kg

DRUGS (10)
  1. PLETAL [Suspect]
     Indication: PERIPHERAL ARTERIAL OCCLUSIVE DISEASE
     Dosage: 100 MG MILLIGRAM(S), BID
     Route: 048
     Dates: start: 201102, end: 201308
  2. PLETAL [Suspect]
     Indication: PERIPHERAL ARTERY ANEURYSM
  3. PLETAL [Suspect]
     Indication: STENT PLACEMENT
  4. CLOPIDOGREL [Concomitant]
     Indication: STENT PLACEMENT
     Dosage: 75 MG MILLIGRAM(S), DAILY DOSE
     Route: 048
     Dates: start: 201102
  5. ACETYLSALICYLIC ACID [Concomitant]
     Indication: THROMBOSIS PROPHYLAXIS
     Dosage: 100 MG MILLIGRAM(S), DAILY DOSE
     Route: 048
     Dates: start: 2003
  6. PANTOPRAZOLE [Concomitant]
     Dosage: 40 MG MILLIGRAM(S), DAILY DOSE
     Dates: start: 2009
  7. LYRICA [Concomitant]
     Indication: PAIN
     Dosage: UNK, UNKNOWN
     Route: 065
     Dates: start: 2009
  8. LOSARTAN [Concomitant]
     Indication: HYPERTENSION
     Dosage: UNK, UNKNOWN
     Route: 065
     Dates: start: 2009
  9. BISOPROLOL [Concomitant]
     Dosage: UNK, UNKNOWN
     Route: 065
  10. SIMVASTATIN [Concomitant]
     Indication: DYSLIPIDAEMIA
     Dosage: 40 MG MILLIGRAM(S), DAILY DOSE
     Route: 048
     Dates: start: 2010

REACTIONS (10)
  - Tachycardia [Recovered/Resolved]
  - Palpitations [Recovered/Resolved]
  - Dyspnoea [Recovered/Resolved]
  - Sleep disorder [Recovered/Resolved]
  - Contraindication to medical treatment [Unknown]
  - Panic attack [Recovered/Resolved]
  - Diarrhoea [Recovered/Resolved]
  - Musculoskeletal discomfort [Recovered/Resolved]
  - Back pain [Unknown]
  - Cardiac disorder [Unknown]
